FAERS Safety Report 6071885-0 (Version None)
Quarter: 2009Q1

REPORT INFORMATION
  Report Type: 
  Country: None (occurrence: None)
  Receive Date: 20090210
  Receipt Date: 20090202
  Transmission Date: 20090719
  Serious: Yes (Hospitalization)
  Sender: FDA-Public Use
  Company Number: FI-BAXTER-2008BH014005

PATIENT
  Age: 32 Year
  Sex: Female
  Weight: 65 kg

DRUGS (13)
  1. EXTRANEAL [Suspect]
     Indication: PERITONEAL DIALYSIS
     Route: 033
     Dates: start: 20081201
  2. EXTRANEAL [Suspect]
     Indication: RENAL FAILURE CHRONIC
     Route: 033
     Dates: start: 20081201
  3. PERITONEAL DIALYSIS SOLUTION [Concomitant]
     Indication: RENAL FAILURE CHRONIC
     Route: 033
     Dates: start: 20081201
  4. LANTUS [Concomitant]
  5. HUMALOG [Concomitant]
  6. CARDACE [Concomitant]
  7. COZAAR [Concomitant]
  8. AMLODIPINE [Concomitant]
  9. LIPITOR [Concomitant]
  10. PRIMASPAN [Concomitant]
  11. CALCICHEW [Concomitant]
  12. ETALPHA [Concomitant]
  13. EPOETIN BETA [Concomitant]

REACTIONS (4)
  - CONVULSION [None]
  - DEVICE INTERACTION [None]
  - HYPOGLYCAEMIA [None]
  - LOSS OF CONSCIOUSNESS [None]
